FAERS Safety Report 25464369 (Version 3)
Quarter: 2025Q3

REPORT INFORMATION
  Report Type: Spontaneous
  Country: CA (occurrence: CA)
  Receive Date: 20250621
  Receipt Date: 20250904
  Transmission Date: 20251021
  Serious: Yes (Other)
  Sender: CELLTRION
  Company Number: CA-PFIZER INC-202500063353

PATIENT

DRUGS (5)
  1. INFLECTRA [Suspect]
     Active Substance: INFLIXIMAB-DYYB
     Indication: Crohn^s disease
     Route: 042
     Dates: start: 20240527
  2. INFLECTRA [Suspect]
     Active Substance: INFLIXIMAB-DYYB
     Route: 042
     Dates: start: 20250224
  3. INFLECTRA [Suspect]
     Active Substance: INFLIXIMAB-DYYB
     Route: 042
     Dates: start: 20250423
  4. ENTOCORT [Concomitant]
     Active Substance: BUDESONIDE
  5. METHOTREXATE [Concomitant]
     Active Substance: METHOTREXATE

REACTIONS (9)
  - Iron deficiency anaemia [Unknown]
  - Tuberculosis [Unknown]
  - Therapeutic response shortened [Unknown]
  - Drug level decreased [Unknown]
  - Drug specific antibody present [Unknown]
  - Drug ineffective [Unknown]
  - Contusion [Unknown]
  - Neutrophil count increased [Unknown]
  - Red blood cell count decreased [Unknown]
